FAERS Safety Report 5392173-1 (Version None)
Quarter: 2007Q3

REPORT INFORMATION
  Report Type: 
  Country: None (occurrence: None)
  Receive Date: 20070717
  Receipt Date: 20070717
  Transmission Date: 20080115
  Serious: Yes (Hospitalization)
  Sender: FDA-Public Use
  Company Number: None

PATIENT
  Sex: Male
  Weight: 83.8 kg

DRUGS (1)
  1. METHOTREXATE [Suspect]

REACTIONS (10)
  - APNOEA [None]
  - CONFUSIONAL STATE [None]
  - COORDINATION ABNORMAL [None]
  - DYSARTHRIA [None]
  - HEADACHE [None]
  - MENTAL STATUS CHANGES [None]
  - MOOD ALTERED [None]
  - MOVEMENT DISORDER [None]
  - PAIN [None]
  - PERIPHERAL MOTOR NEUROPATHY [None]
